FAERS Safety Report 21087969 (Version 2)
Quarter: 2022Q3

REPORT INFORMATION
  Report Type: Spontaneous
  Country: US (occurrence: US)
  Receive Date: 20220715
  Receipt Date: 20220806
  Transmission Date: 20221027
  Serious: No
  Sender: FDA-Public Use
  Company Number: US-Blueprint Medicines Corporation-SP-US-2022-002204

PATIENT
  Age: 50 Year
  Sex: Female

DRUGS (1)
  1. AYVAKIT [Suspect]
     Active Substance: AVAPRITINIB
     Indication: Gastrointestinal stromal tumour
     Route: 048
     Dates: start: 20210211

REACTIONS (1)
  - Fatigue [Not Recovered/Not Resolved]

NARRATIVE: CASE EVENT DATE: 20210218
